FAERS Safety Report 18978392 (Version 1)
Quarter: 2021Q1

REPORT INFORMATION
  Report Type: Spontaneous
  Country: US (occurrence: US)
  Receive Date: 20210307
  Receipt Date: 20210307
  Transmission Date: 20210420
  Serious: No
  Sender: FDA-Public Use
  Company Number: US-ASTRAZENECA-2021A092837

PATIENT
  Sex: Female
  Weight: 49.4 kg

DRUGS (2)
  1. BYDUREON BCISE [Suspect]
     Active Substance: EXENATIDE
     Indication: TYPE 2 DIABETES MELLITUS
     Route: 058
     Dates: start: 20210205
  2. BYDUREON BCISE [Suspect]
     Active Substance: EXENATIDE
     Indication: BLOOD GLUCOSE FLUCTUATION
     Route: 058
     Dates: start: 20210205

REACTIONS (5)
  - Hypoacusis [Not Recovered/Not Resolved]
  - Injection site haemorrhage [Unknown]
  - Blood glucose increased [Unknown]
  - Injection site discolouration [Unknown]
  - Anxiety [Unknown]
